FAERS Safety Report 8470623-1 (Version None)
Quarter: 2012Q2

REPORT INFORMATION
  Report Type: 
  Country: None (occurrence: None)
  Receive Date: 20120627
  Receipt Date: 20120622
  Transmission Date: 20120825
  Serious: Yes (Hospitalization)
  Sender: FDA-Public Use
  Company Number: PHHY2012JP040666

PATIENT
  Age: 75 Year
  Sex: Male

DRUGS (2)
  1. VOLTAREN [Suspect]
     Indication: PYREXIA
     Dosage: 25 MG, DAILY
     Route: 054
     Dates: start: 20120509, end: 20120509
  2. SEROQUEL [Suspect]
     Dosage: 12.5 MG, DAILY
     Route: 048
     Dates: start: 20120101, end: 20120510

REACTIONS (2)
  - PLATELET COUNT DECREASED [None]
  - WHITE BLOOD CELL COUNT DECREASED [None]
